FAERS Safety Report 13710154 (Version 2)
Quarter: 2017Q4

REPORT INFORMATION
  Report Type: Report from Study
  Country: None (occurrence: US)
  Receive Date: 20170703
  Receipt Date: 20171107
  Transmission Date: 20180320
  Serious: Yes (Other)
  Sender: FDA-Public Use
  Company Number: US-ABBVIE-17K-163-2024908-00

PATIENT
  Age: 76 Year
  Sex: Male

DRUGS (1)
  1. HUMIRA [Suspect]
     Active Substance: ADALIMUMAB
     Indication: PSORIATIC ARTHROPATHY
     Dosage: 4 REFILLS REMAINING
     Route: 058

REACTIONS (6)
  - Blood chloride increased [Unknown]
  - Platelet count decreased [Unknown]
  - Gastrointestinal carcinoma [Unknown]
  - Tooth extraction [Unknown]
  - C-reactive protein increased [Unknown]
  - Blood urea increased [Unknown]

NARRATIVE: CASE EVENT DATE: 201705
